FAERS Safety Report 20871139 (Version 1)
Quarter: 2022Q2

REPORT INFORMATION
  Report Type: Spontaneous
  Country: IR (occurrence: IR)
  Receive Date: 20220525
  Receipt Date: 20220525
  Transmission Date: 20220720
  Serious: Yes (Hospitalization, Other)
  Sender: FDA-Public Use
  Company Number: IR-LUPIN PHARMACEUTICALS INC.-2022-07440

PATIENT
  Age: 54 Year
  Sex: Female

DRUGS (5)
  1. LEVOFLOXACIN [Suspect]
     Active Substance: LEVOFLOXACIN
     Indication: Empyema
     Dosage: 500 MG, QD
     Route: 048
  2. CEFTRIAXONE [Concomitant]
     Active Substance: CEFTRIAXONE
     Indication: Empyema
     Dosage: 1 GRAM, QD
     Route: 042
  3. CLINDAMYCIN [Concomitant]
     Active Substance: CLINDAMYCIN
     Indication: Empyema
     Dosage: 600 MG, QD
     Route: 042
  4. ATENOLOL [Concomitant]
     Active Substance: ATENOLOL
     Indication: Hypertension
     Dosage: UNK
     Route: 065
  5. NPH INSULIN [Concomitant]
     Active Substance: INSULIN BEEF
     Indication: Diabetes mellitus
     Dosage: UNK
     Route: 065

REACTIONS (2)
  - Haemolytic anaemia [Recovering/Resolving]
  - Off label use [Unknown]
